FAERS Safety Report 9189420 (Version 1)
Quarter: 2013Q1

REPORT INFORMATION
  Report Type: Spontaneous
  Country: US (occurrence: None)
  Receive Date: 20130322
  Receipt Date: 20130322
  Transmission Date: 20140127
  Serious: No
  Sender: FDA-Public Use
  Company Number: None

PATIENT
  Sex: Female
  Weight: 61.3 kg

DRUGS (1)
  1. HALDOL [Suspect]
     Dosage: 5 MG Q6H PRN PO
     Route: 048
     Dates: start: 20130308, end: 20130309

REACTIONS (7)
  - Feeling abnormal [None]
  - Anxiety [None]
  - Restlessness [None]
  - Speech disorder [None]
  - Drooling [None]
  - Headache [None]
  - Joint lock [None]
